FAERS Safety Report 9422634 (Version 1)
Quarter: 2013Q3

REPORT INFORMATION
  Report Type: Spontaneous
  Country: DE (occurrence: DE)
  Receive Date: 20130726
  Receipt Date: 20130726
  Transmission Date: 20140515
  Serious: Yes (Other)
  Sender: FDA-Public Use
  Company Number: DE-ELI_LILLY_AND_COMPANY-DE201307005296

PATIENT
  Sex: Female

DRUGS (7)
  1. CYMBALTA [Suspect]
     Indication: ANXIETY DISORDER
     Dosage: 30 MG, UNKNOWN
     Route: 048
     Dates: start: 20130714
  2. CYMBALTA [Suspect]
     Indication: PANIC ATTACK
  3. COAPROVEL [Concomitant]
     Dosage: 25 MG, UNKNOWN
  4. METOPROLOL RETARD [Concomitant]
     Dosage: 50 MG, UNKNOWN
  5. AMLODIPIN                          /00972401/ [Concomitant]
     Dosage: 5 MG, UNKNOWN
  6. L-THYROXIN [Concomitant]
     Dosage: 75 UG, UNKNOWN
  7. TAVOR [Concomitant]
     Dosage: UNK, PRN

REACTIONS (6)
  - Pharyngeal oedema [Not Recovered/Not Resolved]
  - Throat tightness [Not Recovered/Not Resolved]
  - Fear of death [Unknown]
  - Feeling cold [Not Recovered/Not Resolved]
  - Paraesthesia [Not Recovered/Not Resolved]
  - Hyperhidrosis [Not Recovered/Not Resolved]
